FAERS Safety Report 20032167 (Version 1)
Quarter: 2021Q4

REPORT INFORMATION
  Report Type: Spontaneous
  Country: US (occurrence: US)
  Receive Date: 20211103
  Receipt Date: 20211103
  Transmission Date: 20220303
  Serious: No
  Sender: FDA-Public Use
  Company Number: US-ALLERGAN-2132566US

PATIENT
  Sex: Female

DRUGS (3)
  1. VRAYLAR [Interacting]
     Active Substance: CARIPRAZINE
     Indication: Bipolar disorder
     Dosage: 1.5 UNK
     Route: 048
     Dates: start: 202108
  2. VRAYLAR [Interacting]
     Active Substance: CARIPRAZINE
     Dosage: UNK UNK, QD
     Dates: start: 20200813
  3. PROVIGIL [Interacting]
     Active Substance: MODAFINIL
     Indication: Product used for unknown indication
     Dosage: UNK

REACTIONS (7)
  - Insomnia [Not Recovered/Not Resolved]
  - Muscle spasms [Recovered/Resolved]
  - Tremor [Not Recovered/Not Resolved]
  - Feeling jittery [Not Recovered/Not Resolved]
  - Malaise [Not Recovered/Not Resolved]
  - Product packaging confusion [Unknown]
  - Therapeutic response decreased [Unknown]
